FAERS Safety Report 7660322-8 (Version None)
Quarter: 2011Q3

REPORT INFORMATION
  Report Type: 
  Country: None (occurrence: None)
  Receive Date: 20110805
  Receipt Date: 20110801
  Transmission Date: 20111222
  Serious: Yes (Hospitalization, Other)
  Sender: FDA-Public Use
  Company Number: US-ELI_LILLY_AND_COMPANY-US201108000173

PATIENT
  Age: 57 Year

DRUGS (9)
  1. CYMBALTA [Concomitant]
  2. METFORMIN HCL [Concomitant]
  3. BYETTA [Suspect]
     Indication: DIABETES MELLITUS
     Dosage: 10 UG, BID
     Dates: start: 20061116, end: 20080301
  4. GLUCOTROL [Concomitant]
  5. SEROQUEL [Concomitant]
  6. HYZAAR [Concomitant]
  7. MEVACOR [Concomitant]
  8. ASPIRIN [Concomitant]
  9. KLONOPIN [Concomitant]

REACTIONS (1)
  - PANCREATITIS [None]
